FAERS Safety Report 14406743 (Version 1)
Quarter: 2018Q1

REPORT INFORMATION
  Report Type: Spontaneous
  Country: FR (occurrence: FR)
  Receive Date: 20180118
  Receipt Date: 20180118
  Transmission Date: 20180509
  Serious: Yes (Hospitalization, Other)
  Sender: FDA-Public Use
  Company Number: FR-MYLANLABS-2018M1003949

PATIENT
  Age: 8 Decade
  Sex: Male

DRUGS (3)
  1. PREDNISONE. [Concomitant]
     Active Substance: PREDNISONE
     Indication: RHEUMATOID ARTHRITIS
     Dosage: 12.5MG DAILY
     Route: 065
     Dates: start: 201205
  2. METHOTREXATE. [Suspect]
     Active Substance: METHOTREXATE
     Indication: RHEUMATOID ARTHRITIS
     Dosage: UNK
     Route: 065
     Dates: start: 201212
  3. LEFLUNOMIDE. [Suspect]
     Active Substance: LEFLUNOMIDE
     Indication: PRODUCT USED FOR UNKNOWN INDICATION
     Dosage: 20MG DAILY
     Route: 065
     Dates: start: 201303

REACTIONS (4)
  - Pyopneumothorax [Unknown]
  - Hyperleukocytosis [Unknown]
  - Rheumatoid nodule [Unknown]
  - Systemic inflammatory response syndrome [Unknown]

NARRATIVE: CASE EVENT DATE: 2014
